FAERS Safety Report 11221100 (Version 1)
Quarter: 2015Q2

REPORT INFORMATION
  Report Type: Spontaneous
  Country: US (occurrence: None)
  Receive Date: 20150625
  Receipt Date: 20150625
  Transmission Date: 20150821
  Serious: Yes (Hospitalization, Disabling, Other)
  Sender: FDA-Public Use
  Company Number: None

PATIENT
  Age: 57 Year
  Sex: Female
  Weight: 103.87 kg

DRUGS (13)
  1. ATENOLOL. [Concomitant]
     Active Substance: ATENOLOL
  2. HAIR SKIN AND NAILS VITAMIN [Concomitant]
  3. METFORMIN [Suspect]
     Active Substance: METFORMIN HYDROCHLORIDE
     Indication: TYPE 2 DIABETES MELLITUS
     Route: 048
     Dates: start: 20140310, end: 20150525
  4. VITAMIN E [Concomitant]
     Active Substance: .ALPHA.-TOCOPHEROL
  5. CALCIUM [Concomitant]
     Active Substance: CALCIUM
  6. HYDROCHLOROTHIAZIDE. [Concomitant]
     Active Substance: HYDROCHLOROTHIAZIDE
  7. MILK THISTLE [Concomitant]
     Active Substance: MILK THISTLE
  8. VITAMIN B12 [Concomitant]
     Active Substance: CYANOCOBALAMIN
  9. LISONOPRIL [Concomitant]
  10. VITAMIN D [Concomitant]
     Active Substance: CHOLECALCIFEROL
  11. FISH OIL [Concomitant]
     Active Substance: FISH OIL
  12. METFORMIN HCL [Concomitant]
     Active Substance: METFORMIN HYDROCHLORIDE
  13. MULTIPLE VITAMIN [Concomitant]
     Active Substance: VITAMINS

REACTIONS (6)
  - Abasia [None]
  - Product odour abnormal [None]
  - Myalgia [None]
  - Product substitution issue [None]
  - Peripheral swelling [None]
  - Dysstasia [None]

NARRATIVE: CASE EVENT DATE: 20150518
